FAERS Safety Report 4633974-4 (Version None)
Quarter: 2005Q2

REPORT INFORMATION
  Report Type: 
  Country: None (occurrence: None)
  Receive Date: 20050407
  Receipt Date: 20050330
  Transmission Date: 20051028
  Serious: Yes (Death)
  Sender: FDA-Public Use
  Company Number: 05P-163-0295481-00

PATIENT
  Age: 53 Year
  Sex: Male

DRUGS (1)
  1. K-TAB [Suspect]
     Dosage: 10 MILLIEQUIVALENTS, 1 IN 1 D, PER ORAL
     Route: 048

REACTIONS (1)
  - CARDIAC ARREST [None]
